FAERS Safety Report 6743465-2 (Version None)
Quarter: 2010Q2

REPORT INFORMATION
  Report Type: 
  Country: None (occurrence: None)
  Receive Date: 20100527
  Receipt Date: 20090717
  Transmission Date: 20101027
  Serious: Yes (Other)
  Sender: FDA-Public Use
  Company Number: US-BAUSCH-2009BL003601

PATIENT
  Age: 31 Year
  Sex: Female

DRUGS (4)
  1. FLUOCINOLONE ACETONIDE [Suspect]
     Indication: CHORIORETINITIS
     Route: 031
     Dates: start: 20081119
  2. CELLCEPT /USA/ [Concomitant]
  3. PREDNISONE TAB [Concomitant]
  4. CYCLOSPORINE [Concomitant]

REACTIONS (2)
  - DRUG INEFFECTIVE [None]
  - GLAUCOMA [None]
